FAERS Safety Report 5961064-7 (Version None)
Quarter: 2008Q4

REPORT INFORMATION
  Report Type: 
  Country: None (occurrence: None)
  Receive Date: 20081119
  Receipt Date: 20081107
  Transmission Date: 20090506
  Serious: Yes (Other)
  Sender: FDA-Public Use
  Company Number: GXKR2008IT10672

PATIENT
  Age: 38 Year
  Sex: Female

DRUGS (13)
  1. VINBLASTINE SULFATE [Suspect]
     Indication: HODGKIN'S DISEASE
     Dosage: 6MG/M2, WEEKS 1, 3, 5, 7, 9, 11
     Route: 048
  2. DOXORUBICIN HCL [Suspect]
     Indication: HODGKIN'S DISEASE
     Dosage: 25 MG/M2, WEEKS 1, 3, 5, 7, 9, 11;
  3. VINCRISTINE [Suspect]
     Indication: HODGKIN'S DISEASE
     Dosage: 1.4, MG/M2, WEEKS 2, 4, 6, 8, 10, 12
  4. BLEOMYCIN (NGX) (BLEOMYCIN SULFATE) UNKNOWN [Suspect]
     Indication: HODGKIN'S DISEASE
     Dosage: 5 IU/M2, WEEKS 2, 4, 6, 8, 10, 12
  5. ETOPOSIDE [Suspect]
     Indication: HODGKIN'S DISEASE
     Dosage: 60 MG/M2 BID ON WEEKS 3, 7, AND 11
  6. PREDNISONE [Suspect]
     Indication: HODGKIN'S DISEASE
     Dosage: 40 MG/M2, EVERY OTHER DAY ON WEEKS 1 0, TAPERED DURING WEEKS 11 AND 12, ORAL
     Route: 048
  7. CHLORMETHINE (CHLORMETHINE) [Suspect]
     Indication: HODGKIN'S DISEASE
     Dosage: 6 MG/M2, ON WEEKS 1, 5 AND 9;
  8. IMMUNOSUPPRESSANTS (NO INGREDIENTS/SUBSTANCES) [Concomitant]
  9. CO-TRIMOXAZOLE (CO-TRIMOXAZOLE) [Concomitant]
  10. FLUCONAZOLE [Concomitant]
  11. RANITIDINE [Concomitant]
  12. ACYCLOVIR [Concomitant]
  13. VALACYCLOVIR [Concomitant]

REACTIONS (2)
  - NEUTROPENIA [None]
  - NON-HODGKIN'S LYMPHOMA [None]
